FAERS Safety Report 15900442 (Version 1)
Quarter: 2019Q1

REPORT INFORMATION
  Report Type: Spontaneous
  Country: US (occurrence: US)
  Receive Date: 20190201
  Receipt Date: 20190201
  Transmission Date: 20190417
  Serious: No
  Sender: FDA-Public Use
  Company Number: US-BAYER-2019-022904

PATIENT
  Sex: Female

DRUGS (12)
  1. TERAZOSIN [Concomitant]
     Active Substance: TERAZOSIN\TERAZOSIN HYDROCHLORIDE
  2. PROTONIX [OMEPRAZOLE] [Concomitant]
     Active Substance: OMEPRAZOLE
  3. TEMAZEPAM. [Concomitant]
     Active Substance: TEMAZEPAM
  4. RANITINE [Concomitant]
  5. HYDROXYZINE HYDROCHLORIDE. [Concomitant]
     Active Substance: HYDROXYZINE HYDROCHLORIDE
  6. REXULTI [Concomitant]
     Active Substance: BREXPIPRAZOLE
  7. BUSPIRON [BUSPIRONE HYDROCHLORIDE] [Concomitant]
  8. CLARITIN [Suspect]
     Active Substance: LORATADINE
     Indication: PRODUCT USED FOR UNKNOWN INDICATION
     Dosage: UNK
  9. SERTRALINE [Concomitant]
     Active Substance: SERTRALINE HYDROCHLORIDE
  10. VITAMIN D [Concomitant]
     Active Substance: CHOLECALCIFEROL
  11. GABAPENTIN. [Concomitant]
     Active Substance: GABAPENTIN
  12. CYANOCOBALAMIN. [Concomitant]
     Active Substance: CYANOCOBALAMIN

REACTIONS (1)
  - Fatigue [Not Recovered/Not Resolved]
